FAERS Safety Report 8361637-0 (Version None)
Quarter: 2012Q2

REPORT INFORMATION
  Report Type: 
  Country: None (occurrence: None)
  Receive Date: 20120515
  Receipt Date: 20120507
  Transmission Date: 20120825
  Serious: Yes (Other)
  Sender: FDA-Public Use
  Company Number: US-US-EMD SERONO, INC.-7131517

PATIENT
  Sex: Female

DRUGS (2)
  1. REBIF [Suspect]
  2. REBIF [Suspect]
     Indication: PRODUCT USED FOR UNKNOWN INDICATION
     Route: 058
     Dates: start: 20100414

REACTIONS (4)
  - CENTRAL NERVOUS SYSTEM LESION [None]
  - PAIN IN EXTREMITY [None]
  - HYPOAESTHESIA [None]
  - HYSTERECTOMY [None]
